FAERS Safety Report 9917804 (Version 2)
Quarter: 2014Q1

REPORT INFORMATION
  Report Type: Report from Study
  Country: US (occurrence: US)
  Receive Date: 20140221
  Receipt Date: 20140221
  Transmission Date: 20141002
  Serious: Yes (Hospitalization)
  Sender: FDA-Public Use
  Company Number: US-ABBVIE-13P-163-1153989-00

PATIENT
  Age: 66 Year
  Sex: Female
  Weight: 66.28 kg

DRUGS (25)
  1. HUMIRA [Suspect]
     Indication: CROHN^S DISEASE
     Route: 058
     Dates: start: 20130920, end: 20130920
  2. HUMIRA [Suspect]
     Route: 058
     Dates: start: 20131004, end: 20131004
  3. HUMIRA [Suspect]
     Route: 058
     Dates: start: 20131018
  4. PLAVIX [Concomitant]
     Indication: MYOCARDIAL INFARCTION
  5. PLAVIX [Concomitant]
     Indication: DEVICE OCCLUSION
  6. PLAVIX [Concomitant]
     Indication: CORONARY ARTERIAL STENT INSERTION
  7. LISINOPRIL [Concomitant]
     Indication: MYOCARDIAL INFARCTION
  8. LISINOPRIL [Concomitant]
     Indication: DEVICE OCCLUSION
  9. LISINOPRIL [Concomitant]
     Indication: HYPERTENSION
  10. METOPROLOL [Concomitant]
     Indication: MYOCARDIAL INFARCTION
  11. METOPROLOL [Concomitant]
     Indication: DEVICE OCCLUSION
     Dosage: 1/2 TAB BID
  12. METOPROLOL [Concomitant]
     Indication: HYPERTENSION
  13. ATORVASTATIN [Concomitant]
     Indication: BLOOD CHOLESTEROL INCREASED
  14. LEVOTHYROXINE [Concomitant]
     Indication: HYPOTHYROIDISM
  15. DEXILANT [Concomitant]
     Indication: GASTROOESOPHAGEAL REFLUX DISEASE
  16. BIOTIN [Concomitant]
     Indication: UNEVALUABLE EVENT
  17. CALCIUM [Concomitant]
     Indication: VITAMIN SUPPLEMENTATION
  18. VIT D [Concomitant]
     Indication: VITAMIN SUPPLEMENTATION
  19. ZOLPIDEM [Concomitant]
     Indication: INSOMNIA
     Dosage: BEDTIME
  20. MIRALAX [Concomitant]
     Indication: CONSTIPATION
  21. ASA [Concomitant]
     Indication: MYOCARDIAL INFARCTION
  22. ASA [Concomitant]
     Indication: DEVICE OCCLUSION
  23. POLYEXTHYLENE GLYCOL [Concomitant]
     Indication: CONSTIPATION
  24. HYDROCORTISONE ACETATE [Concomitant]
     Indication: CROHN^S DISEASE
     Route: 061
  25. PRAMOXINE [Concomitant]
     Indication: PRODUCT USED FOR UNKNOWN INDICATION
     Route: 061

REACTIONS (40)
  - Pain in extremity [Not Recovered/Not Resolved]
  - Musculoskeletal chest pain [Not Recovered/Not Resolved]
  - Frequent bowel movements [Not Recovered/Not Resolved]
  - Back pain [Not Recovered/Not Resolved]
  - Vision blurred [Not Recovered/Not Resolved]
  - Headache [Not Recovered/Not Resolved]
  - Hot flush [Not Recovered/Not Resolved]
  - Chills [Not Recovered/Not Resolved]
  - Flatulence [Not Recovered/Not Resolved]
  - Proctalgia [Recovered/Resolved]
  - Abdominal pain [Recovered/Resolved]
  - Constipation [Not Recovered/Not Resolved]
  - Abdominal distension [Not Recovered/Not Resolved]
  - Asthenia [Not Recovered/Not Resolved]
  - Rectal spasm [Not Recovered/Not Resolved]
  - Crying [Not Recovered/Not Resolved]
  - Blood pressure increased [Not Recovered/Not Resolved]
  - Abdominal pain [Not Recovered/Not Resolved]
  - Flatulence [Not Recovered/Not Resolved]
  - Neuropathy peripheral [Not Recovered/Not Resolved]
  - Pain [Not Recovered/Not Resolved]
  - Asthenia [Not Recovered/Not Resolved]
  - Muscular weakness [Not Recovered/Not Resolved]
  - Eye pain [Not Recovered/Not Resolved]
  - Paraesthesia [Not Recovered/Not Resolved]
  - Oral herpes [Not Recovered/Not Resolved]
  - Parosmia [Not Recovered/Not Resolved]
  - Blood creatinine decreased [Not Recovered/Not Resolved]
  - Pain [Not Recovered/Not Resolved]
  - Stress [Unknown]
  - Adverse drug reaction [Unknown]
  - Chest discomfort [Not Recovered/Not Resolved]
  - Heart rate increased [Not Recovered/Not Resolved]
  - Sensation of pressure [Not Recovered/Not Resolved]
  - Chest pain [Unknown]
  - Sensation of pressure [Unknown]
  - Heart rate increased [Unknown]
  - Chest pain [Unknown]
  - Dizziness [Not Recovered/Not Resolved]
  - Abdominal pain [Not Recovered/Not Resolved]
